FAERS Safety Report 5309735-X (Version None)
Quarter: 2007Q2

REPORT INFORMATION
  Report Type: 
  Country: None (occurrence: None)
  Receive Date: 20070427
  Receipt Date: 20070420
  Transmission Date: 20071010
  Serious: Yes (Hospitalization)
  Sender: FDA-Public Use
  Company Number: US-AVENTIS-200712848US

PATIENT

DRUGS (1)
  1. APIDRA [Suspect]
     Dosage: DOSE: INSULIN PUMP

REACTIONS (1)
  - DIABETIC KETOACIDOSIS [None]
